FAERS Safety Report 6784459-0 (Version None)
Quarter: 2010Q2

REPORT INFORMATION
  Report Type: 
  Country: None (occurrence: None)
  Receive Date: 20100617
  Receipt Date: 20100601
  Transmission Date: 20101027
  Serious: Yes (Other)
  Sender: FDA-Public Use
  Company Number: 2010BI018464

PATIENT
  Age: 64 Year
  Sex: Male

DRUGS (8)
  1. ZEVALIN [Suspect]
     Indication: DIFFUSE LARGE B-CELL LYMPHOMA
  2. RITUXIMAB [Concomitant]
  3. ANTHRACYCLINE [Concomitant]
  4. IFOSFAMIDE [Concomitant]
  5. CARBOPLATIN [Concomitant]
  6. ETOPOSIDE [Concomitant]
  7. ANTIFOLATE AGONIST PRALATREXATE [Concomitant]
  8. BENDAMUSTINE [Concomitant]

REACTIONS (5)
  - DIFFUSE LARGE B-CELL LYMPHOMA [None]
  - EXOPHTHALMOS [None]
  - HAEMORRHAGIC TUMOUR NECROSIS [None]
  - INFLAMMATION [None]
  - PAROPHTHALMIA [None]
